FAERS Safety Report 12338147 (Version 2)
Quarter: 2016Q2

REPORT INFORMATION
  Report Type: Spontaneous
  Country: KR (occurrence: KR)
  Receive Date: 20160505
  Receipt Date: 20160613
  Transmission Date: 20160815
  Serious: Yes (Death, Other)
  Sender: FDA-Public Use
  Company Number: KR-MALLINCKRODT-T201601563

PATIENT
  Age: 0 Year
  Sex: Male
  Weight: .42 kg

DRUGS (13)
  1. INOMAX [Suspect]
     Active Substance: NITRIC OXIDE
     Indication: NEONATAL RESPIRATORY DISTRESS SYNDROME
     Dosage: 5 PPM CONTINUOUS
     Dates: start: 20160419, end: 20160424
  2. GENTAMYCIN [Concomitant]
     Active Substance: GENTAMICIN
     Dosage: 2.1 MG/DAY
     Route: 042
     Dates: start: 20160418, end: 20160420
  3. HYDROCORTISONE. [Concomitant]
     Active Substance: HYDROCORTISONE
     Dosage: 1.5 MG/DAY
     Route: 042
     Dates: start: 20160419, end: 20160424
  4. AMINOPHYLLINE. [Concomitant]
     Active Substance: AMINOPHYLLINE
     Route: 065
  5. AMIKACIN [Concomitant]
     Active Substance: AMIKACIN
     Dosage: UNK
     Route: 042
     Dates: start: 20160421, end: 20160424
  6. TAZOCIN [Concomitant]
     Active Substance: PIPERACILLIN SODIUM\TAZOBACTAM SODIUM
     Dosage: 10 MG/DAY
     Route: 042
     Dates: start: 20160423, end: 20160424
  7. EPINEPHRINE. [Concomitant]
     Active Substance: EPINEPHRINE
     Dosage: UNK
     Route: 042
     Dates: start: 20160423, end: 20160424
  8. PHENOBARBITAL. [Concomitant]
     Active Substance: PHENOBARBITAL
     Dosage: UNK
     Route: 042
     Dates: start: 20160422, end: 20160424
  9. TPN [Concomitant]
     Active Substance: AMINO ACIDS\DEXTROSE\ELECTROLYTES NOS\SOYBEAN OIL
     Dosage: UNK
     Route: 051
     Dates: start: 201604, end: 201604
  10. DOBUTAMINE [Concomitant]
     Active Substance: DOBUTAMINE\DOBUTAMINE HYDROCHLORIDE
     Dosage: UNK
     Route: 042
     Dates: start: 20160423, end: 20160424
  11. AMPICILLIN [Concomitant]
     Active Substance: AMPICILLIN
     Dosage: 42 MG/DAY
     Route: 042
     Dates: start: 20160418, end: 20160422
  12. CUROSURF [Concomitant]
     Active Substance: PORACTANT ALFA
     Dosage: 1 VIAL/DAY
     Route: 039
     Dates: start: 20160418, end: 20160420
  13. DOPAMINE [Concomitant]
     Active Substance: DOPAMINE\DOPAMINE HYDROCHLORIDE
     Dosage: UNK
     Route: 042
     Dates: start: 20160423, end: 20160424

REACTIONS (6)
  - Haemoglobin decreased [Not Recovered/Not Resolved]
  - Haematocrit decreased [Not Recovered/Not Resolved]
  - Platelet count decreased [Not Recovered/Not Resolved]
  - Multiple organ dysfunction syndrome [Fatal]
  - Metabolic acidosis [Not Recovered/Not Resolved]
  - Off label use [Unknown]

NARRATIVE: CASE EVENT DATE: 201604
